FAERS Safety Report 5904852-5 (Version None)
Quarter: 2008Q4

REPORT INFORMATION
  Report Type: 
  Country: None (occurrence: None)
  Receive Date: 20081001
  Receipt Date: 20080925
  Transmission Date: 20090506
  Serious: Yes (Congenital Anomaly)
  Sender: FDA-Public Use
  Company Number: A0735245A

PATIENT
  Sex: Male

DRUGS (3)
  1. PAXIL [Suspect]
     Indication: ANXIETY
     Dates: start: 20011201, end: 20051001
  2. PAXIL CR [Suspect]
     Indication: ANXIETY
     Dates: start: 20051001, end: 20060301
  3. PAROXETINE HYDROCHLORIDE [Suspect]
     Indication: ANXIETY

REACTIONS (2)
  - ATRIAL SEPTAL DEFECT [None]
  - DRUG EXPOSURE DURING PREGNANCY [None]
